FAERS Safety Report 19738958 (Version 4)
Quarter: 2021Q3

REPORT INFORMATION
  Report Type: Other
  Country: EG (occurrence: EG)
  Receive Date: 20210824
  Receipt Date: 20210928
  Transmission Date: 20211014
  Serious: Yes (Hospitalization)
  Sender: FDA-Public Use
  Company Number: EG-ROCHE-2892162

PATIENT
  Age: 39 Year
  Sex: Male
  Weight: 98 kg

DRUGS (3)
  1. RIVAROSPIRE [Concomitant]
     Route: 048
     Dates: start: 20210826
  2. OCRELIZUMAB. [Suspect]
     Active Substance: OCRELIZUMAB
     Indication: RELAPSING-REMITTING MULTIPLE SCLEROSIS
     Dosage: ON 28/APR/2021, HE RECEIVED THE MOST RECENT DOSE OF OCRELIZUMAB (600 MG) PRIOR TO ONSET OF SERIOUS A
     Route: 042
     Dates: start: 20191012
  3. OMEGA 3 PLUS [FISH OIL] [Concomitant]
     Dosage: MS SYMPTOMATIC TREATMENTS
     Route: 048
     Dates: start: 20201104

REACTIONS (1)
  - Pneumonia [Recovered/Resolved]

NARRATIVE: CASE EVENT DATE: 20210810
